FAERS Safety Report 4924213-5 (Version None)
Quarter: 2006Q1

REPORT INFORMATION
  Report Type: 
  Country: None (occurrence: None)
  Receive Date: 20060227
  Receipt Date: 20051216
  Transmission Date: 20060701
  Serious: No
  Sender: FDA-Public Use
  Company Number: US-GLAXOSMITHKLINE-A0586124A

PATIENT
  Age: 38 Year
  Sex: Female

DRUGS (2)
  1. WELLBUTRIN XL [Suspect]
     Indication: ANXIETY
     Dosage: 150MG PER DAY
     Route: 048
  2. ORTHO TRI-CYCLEN [Concomitant]

REACTIONS (2)
  - DIARRHOEA [None]
  - DRUG INEFFECTIVE [None]
